FAERS Safety Report 4944983-X (Version None)
Quarter: 2006Q1

REPORT INFORMATION
  Report Type: 
  Country: None (occurrence: None)
  Receive Date: 20060117
  Receipt Date: 20050504
  Transmission Date: 20060701
  Serious: Yes (Hospitalization)
  Sender: FDA-Public Use
  Company Number: A03200501367

PATIENT
  Age: 84 Year
  Sex: Female
  Weight: 47.62 kg

DRUGS (4)
  1. PLAVIX [Suspect]
     Indication: CORONARY ARTERIAL STENT INSERTION
     Dosage: 75 MG QD - ORAL
     Route: 048
     Dates: start: 20050315
  2. METOPROLOL SUCCINATE [Concomitant]
  3. ENALAPRIL MALEATE [Concomitant]
  4. ACETYLSALICYLIC ACID SRT [Concomitant]

REACTIONS (2)
  - CORONARY ARTERY DISEASE [None]
  - DIARRHOEA [None]
